FAERS Safety Report 6209905-2 (Version None)
Quarter: 2009Q2

REPORT INFORMATION
  Report Type: 
  Country: None (occurrence: None)
  Receive Date: 20090601
  Receipt Date: 20090529
  Transmission Date: 20091009
  Serious: Yes (Death, Other)
  Sender: FDA-Public Use
  Company Number: US-PFIZER INC-2009167191

PATIENT
  Sex: Female
  Weight: 93.424 kg

DRUGS (5)
  1. CELEBREX [Suspect]
     Dosage: 200 MG, 2X/DAY
     Dates: end: 20090208
  2. NEURONTIN [Suspect]
     Dosage: 600 MG, 2X/DAY
     Dates: end: 20090208
  3. LYRICA [Suspect]
     Dosage: 225 MG, 2X/DAY
     Dates: end: 20090208
  4. ADVAIR DISKUS 100/50 [Concomitant]
  5. ALBUTEROL [Concomitant]
     Route: 055

REACTIONS (2)
  - DEATH [None]
  - DRUG ABUSE [None]
